FAERS Safety Report 7546617-7 (Version None)
Quarter: 2011Q2

REPORT INFORMATION
  Report Type: 
  Country: None (occurrence: None)
  Receive Date: 20110614
  Receipt Date: 20110608
  Transmission Date: 20111010
  Serious: Yes (Other)
  Sender: FDA-Public Use
  Company Number: US-PFIZER INC-2011125449

PATIENT
  Sex: Female

DRUGS (5)
  1. GEODON [Suspect]
     Indication: BIPOLAR DISORDER
     Dosage: 80 MG, UNK
  2. DEXTROAMPHETAMINE [Concomitant]
     Dosage: UNK
  3. SUMATRIPTAN [Concomitant]
     Dosage: UNK
  4. AMBIEN [Concomitant]
     Dosage: UNK
  5. OXCARBAZEPINE [Concomitant]
     Dosage: UNK

REACTIONS (5)
  - AGGRESSION [None]
  - MENTAL DISORDER [None]
  - LOSS OF CONSCIOUSNESS [None]
  - DYSKINESIA [None]
  - MEMORY IMPAIRMENT [None]
